FAERS Safety Report 23415899 (Version 2)
Quarter: 2024Q1

REPORT INFORMATION
  Report Type: Spontaneous
  Country: CH (occurrence: CH)
  Receive Date: 20240118
  Receipt Date: 20240307
  Transmission Date: 20240410
  Serious: Yes (Other)
  Sender: FDA-Public Use
  Company Number: CH-009507513-2401CHE005905

PATIENT
  Age: 66 Year
  Sex: Male
  Weight: 45.1 kg

DRUGS (1)
  1. DELSTRIGO [Suspect]
     Active Substance: DORAVIRINE\LAMIVUDINE\TENOFOVIR DISOPROXIL FUMARATE
     Route: 048

REACTIONS (1)
  - Lung neoplasm malignant [Unknown]
